FAERS Safety Report 8154874-1 (Version None)
Quarter: 2012Q1

REPORT INFORMATION
  Report Type: 
  Country: None (occurrence: None)
  Receive Date: 20120221
  Receipt Date: 20120214
  Transmission Date: 20120608
  Serious: Yes (Other)
  Sender: FDA-Public Use
  Company Number: PHEH2012US003897

PATIENT
  Sex: Female

DRUGS (8)
  1. ANTIVERT [Concomitant]
     Dosage: 25 MG, UNK
  2. FISH OIL [Concomitant]
     Dosage: 1000 MG, UNK
  3. MIRAPEX [Concomitant]
     Dosage: 0.5 MG, UNK
  4. CALCIUM D [Concomitant]
  5. LOVASTATIN [Concomitant]
     Dosage: 20 MG, UNK
  6. GILENYA [Suspect]
     Indication: MULTIPLE SCLEROSIS
     Dosage: 0.5 MG, QD
     Route: 048
     Dates: start: 20111201
  7. CARVEDILOL [Concomitant]
     Dosage: 12.5 MG, UNK
  8. VITAMIN B COMPLEX CAP [Concomitant]

REACTIONS (2)
  - MYOCARDIAL INFARCTION [None]
  - ELECTROCARDIOGRAM ABNORMAL [None]
